FAERS Safety Report 24037991 (Version 1)
Quarter: 2024Q3

REPORT INFORMATION
  Report Type: Spontaneous
  Country: US (occurrence: US)
  Receive Date: 20240702
  Receipt Date: 20240702
  Transmission Date: 20241016
  Serious: No
  Sender: RANBAXY
  Company Number: US-SUN PHARMACEUTICAL INDUSTRIES LTD-2022R1-357581

PATIENT
  Age: 11 Year
  Sex: Female

DRUGS (1)
  1. ISOTRETINOIN [Suspect]
     Active Substance: ISOTRETINOIN
     Indication: Dermatitis acneiform
     Dosage: 20 MILLIGRAM, DAILY, (0.3 MG/KG/DAY)
     Route: 065

REACTIONS (2)
  - Xerosis [Unknown]
  - Paronychia [Unknown]
